FAERS Safety Report 4341034-5 (Version None)
Quarter: 2004Q2

REPORT INFORMATION
  Report Type: 
  Country: None (occurrence: None)
  Receive Date: 20040419
  Receipt Date: 20040218
  Transmission Date: 20050107
  Serious: Yes (Other)
  Sender: FDA-Public Use
  Company Number: JP-MERCK-0402USA01602

PATIENT
  Age: 16 Year
  Sex: Male

DRUGS (7)
  1. FOIPAN [Concomitant]
     Route: 048
     Dates: start: 20030909, end: 20030912
  2. CLAFORAN [Concomitant]
     Route: 042
     Dates: start: 20030908, end: 20030912
  3. PEPCID [Suspect]
     Indication: GASTRIC ULCER
     Route: 042
     Dates: start: 20030827, end: 20030910
  4. MIDAZOLAM HCL [Concomitant]
     Indication: RESPIRATORY THERAPY
     Route: 042
     Dates: start: 20030827, end: 20030830
  5. PITRESSIN [Suspect]
     Indication: DIABETES INSIPIDUS
     Route: 042
     Dates: start: 20030828, end: 20030904
  6. PITRESSIN [Suspect]
     Route: 042
     Dates: start: 20030905, end: 20030913
  7. MUSCULAX [Concomitant]
     Indication: RESPIRATORY THERAPY
     Route: 042
     Dates: start: 20030827, end: 20030830

REACTIONS (6)
  - ALANINE AMINOTRANSFERASE INCREASED [None]
  - ARTERIOVENOUS FISTULA, ACQUIRED [None]
  - ASPARTATE AMINOTRANSFERASE INCREASED [None]
  - BLOOD AMYLASE INCREASED [None]
  - HEPATIC FUNCTION ABNORMAL [None]
  - LIPASE INCREASED [None]
